FAERS Safety Report 6872911-9 (Version None)
Quarter: 2010Q3

REPORT INFORMATION
  Report Type: 
  Country: None (occurrence: None)
  Receive Date: 20100723
  Receipt Date: 20081107
  Transmission Date: 20110219
  Serious: No
  Sender: FDA-Public Use
  Company Number: US-PFIZER INC-2008098019

PATIENT
  Sex: Male
  Weight: 77.272 kg

DRUGS (10)
  1. CHANTIX [Suspect]
     Indication: SMOKING CESSATION THERAPY
     Dates: start: 20081001
  2. SPIRIVA [Concomitant]
  3. OXYCONTIN [Concomitant]
  4. CLOPIDOGREL [Concomitant]
  5. OXYCODONE [Concomitant]
  6. LEXAPRO [Concomitant]
  7. XANAX [Concomitant]
  8. ATENOLOL [Concomitant]
  9. CARDIAC THERAPY [Concomitant]
  10. DRUG, UNSPECIFIED [Concomitant]

REACTIONS (1)
  - NAUSEA [None]
